FAERS Safety Report 10799235 (Version 2)
Quarter: 2015Q1

REPORT INFORMATION
  Report Type: Spontaneous
  Country: US (occurrence: US)
  Receive Date: 20150216
  Receipt Date: 20150216
  Transmission Date: 20150721
  Serious: No
  Sender: FDA-Public Use
  Company Number: US-ALLERGAN-1400771US

PATIENT
  Age: 73 Year
  Sex: Female

DRUGS (3)
  1. RESTASIS [Suspect]
     Active Substance: CYCLOSPORINE
     Indication: DRY EYE
     Dosage: 2 GTT, QAM
     Route: 047
     Dates: start: 20140109, end: 20140113
  2. CORGARD [Concomitant]
     Active Substance: NADOLOL
     Indication: HYPERTENSION
     Dosage: 40 MG, QD
     Route: 048
  3. OVER THE COUNTER LUBRICATING EYE DROP NOS [Concomitant]
     Indication: DRY EYE
     Dosage: 2 GTT, PRN
     Route: 047
     Dates: start: 201310

REACTIONS (10)
  - Eye irritation [Recovered/Resolved]
  - Foreign body sensation in eyes [Recovered/Resolved]
  - Eye pain [Not Recovered/Not Resolved]
  - Insomnia [Unknown]
  - Eye discharge [Not Recovered/Not Resolved]
  - Eye disorder [Unknown]
  - Photophobia [Not Recovered/Not Resolved]
  - Eye irritation [Recovered/Resolved]
  - Eye irritation [Not Recovered/Not Resolved]
  - Rhinorrhoea [Not Recovered/Not Resolved]

NARRATIVE: CASE EVENT DATE: 20140114
